FAERS Safety Report 5257285-1 (Version None)
Quarter: 2007Q1

REPORT INFORMATION
  Report Type: 
  Country: None (occurrence: None)
  Receive Date: 20061220
  Receipt Date: 20061002
  Transmission Date: 20070707
  Serious: No
  Sender: FDA-Public Use
  Company Number: 2006RL000351

PATIENT
  Age: 77 Year
  Sex: Female
  Weight: 68.0396 kg

DRUGS (3)
  1. OMACOR [Suspect]
     Indication: DRUG USE FOR UNKNOWN INDICATION
     Dosage: 1 GM; BID; PO
     Route: 048
     Dates: start: 20060929, end: 20061001
  2. BENICAR [Concomitant]
  3. CLARINEX [Concomitant]

REACTIONS (2)
  - MALAISE [None]
  - NAUSEA [None]
